FAERS Safety Report 8849109 (Version 1)
Quarter: 2012Q4

REPORT INFORMATION
  Report Type: 
  Country: US (occurrence: US)
  Receive Date: 20121019
  Receipt Date: 20121019
  Transmission Date: 20130627
  Serious: Yes (Hospitalization)
  Sender: FDA-Public Use
  Company Number: US-BAYER-2012-106407

PATIENT
  Age: 23 Year
  Sex: Female
  Weight: 136.5 kg

DRUGS (7)
  1. YASMIN [Suspect]
     Indication: CONTRACEPTION
  2. OCELLA [Suspect]
     Indication: CONTRACEPTION
  3. SAFYRAL [Suspect]
  4. ZOFRAN [Concomitant]
     Indication: NAUSEA
  5. MORPHINE [Concomitant]
     Indication: PAIN
  6. KETOROLAC [Concomitant]
     Indication: MIGRAINE
  7. PERCOCET [Concomitant]
     Indication: PAIN

REACTIONS (1)
  - Thrombophlebitis superficial [None]
